FAERS Safety Report 13512840 (Version 2)
Quarter: 2017Q2

REPORT INFORMATION
  Report Type: Spontaneous
  Country: CH (occurrence: AU)
  Receive Date: 20170504
  Receipt Date: 20170516
  Transmission Date: 20170830
  Serious: Yes (Other)
  Sender: FDA-Public Use
  Company Number: CH-LPDUSPRD-20170543

PATIENT
  Age: 18 Year
  Sex: Female

DRUGS (3)
  1. FERINJECT [Suspect]
     Active Substance: FERRIC CARBOXYMALTOSE
     Dosage: 1GM IN 250ML NACL
     Route: 041
     Dates: start: 20170222, end: 20170222
  2. IMPLANON [Concomitant]
     Active Substance: ETONOGESTREL
     Dosage: DOSE UNKNOWN
     Route: 059
  3. LAMICTAL [Concomitant]
     Active Substance: LAMOTRIGINE
     Dosage: 50MG,2 IN 1 DAY
     Route: 048

REACTIONS (4)
  - Depressed level of consciousness [Unknown]
  - Feeling abnormal [Recovered/Resolved]
  - Syncope [Unknown]
  - Feeling cold [Unknown]

NARRATIVE: CASE EVENT DATE: 20170222
